FAERS Safety Report 25610846 (Version 1)
Quarter: 2025Q3

REPORT INFORMATION
  Report Type: Spontaneous
  Country: US (occurrence: US)
  Receive Date: 20250728
  Receipt Date: 20250728
  Transmission Date: 20251020
  Serious: No
  Sender: SANOFI AVENTIS
  Company Number: US-SANOFI-02601732

PATIENT

DRUGS (3)
  1. MULTAQ [Suspect]
     Active Substance: DRONEDARONE
  2. ALLEGRA [Suspect]
     Active Substance: FEXOFENADINE HYDROCHLORIDE
  3. PEPCID [Suspect]
     Active Substance: FAMOTIDINE

REACTIONS (2)
  - Palpitations [Unknown]
  - Dyspnoea [Unknown]
